FAERS Safety Report 5486222-X (Version None)
Quarter: 2007Q4

REPORT INFORMATION
  Report Type: 
  Country: None (occurrence: None)
  Receive Date: 20071005
  Receipt Date: 20070716
  Transmission Date: 20080405
  Serious: No
  Sender: FDA-Public Use
  Company Number: PHEH2007US10002

PATIENT
  Age: 83 Year
  Sex: Female

DRUGS (2)
  1. TEKTURNA [Suspect]
     Indication: HYPERTENSION
     Dosage: 150 MG QD ORAL, 300 MG QD ORAL
     Route: 048
     Dates: start: 20070401, end: 20070509
  2. TEKTURNA [Suspect]
     Indication: HYPERTENSION
     Dosage: 150 MG QD ORAL, 300 MG QD ORAL
     Route: 048
     Dates: start: 20070510

REACTIONS (2)
  - DIARRHOEA [None]
  - MUSCLE SPASMS [None]
